FAERS Safety Report 7009031-9 (Version None)
Quarter: 2010Q3

REPORT INFORMATION
  Report Type: 
  Country: None (occurrence: None)
  Receive Date: 20100921
  Receipt Date: 20100820
  Transmission Date: 20110219
  Serious: Yes (Other)
  Sender: FDA-Public Use
  Company Number: AUR-APU-2010-02142

PATIENT
  Age: 62 Year
  Sex: Female

DRUGS (3)
  1. METFORMIN HCL [Suspect]
     Indication: BLOOD GLUCOSE
     Dosage: 500MG-TID-ORAL
     Route: 048
     Dates: start: 20100808, end: 20100816
  2. LISINOPRIL [Concomitant]
  3. LEVOTHYROXINE [Concomitant]

REACTIONS (1)
  - BLOOD GLUCOSE INCREASED [None]
